FAERS Safety Report 25413316 (Version 2)
Quarter: 2025Q2

REPORT INFORMATION
  Report Type: Report from Study
  Country: US (occurrence: US)
  Receive Date: 20250609
  Receipt Date: 20250620
  Transmission Date: 20250716
  Serious: Yes (Hospitalization, Other)
  Sender: ABBVIE
  Company Number: US-ABBVIE-6312859

PATIENT
  Age: 64 Year
  Sex: Male

DRUGS (1)
  1. RINVOQ [Suspect]
     Active Substance: UPADACITINIB
     Indication: Dermatitis atopic
     Route: 048
     Dates: start: 20220310

REACTIONS (8)
  - Sepsis [Not Recovered/Not Resolved]
  - Pain [Unknown]
  - Scratch [Recovering/Resolving]
  - Blood blister [Unknown]
  - Hypersomnia [Unknown]
  - Pneumonia [Recovering/Resolving]
  - Loss of consciousness [Recovering/Resolving]
  - Heart valve replacement [Unknown]

NARRATIVE: CASE EVENT DATE: 20240901
